FAERS Safety Report 11026480 (Version 1)
Quarter: 2015Q2

REPORT INFORMATION
  Report Type: Spontaneous
  Country: US (occurrence: None)
  Receive Date: 20150413
  Receipt Date: 20150413
  Transmission Date: 20150821
  Serious: No
  Sender: FDA-Public Use
  Company Number: None

PATIENT
  Age: 41 Year
  Sex: Female
  Weight: 77.11 kg

DRUGS (5)
  1. PREDNISONE. [Suspect]
     Active Substance: PREDNISONE
     Indication: PERIPHERAL SWELLING
     Dosage: 6 A DAY
     Route: 048
     Dates: start: 20150331, end: 20150408
  2. PREDNISONE. [Suspect]
     Active Substance: PREDNISONE
     Indication: JOINT SWELLING
     Dosage: 6 A DAY
     Route: 048
     Dates: start: 20150331, end: 20150408
  3. PREDNISONE. [Concomitant]
     Active Substance: PREDNISONE
  4. GABAPENTIN. [Concomitant]
     Active Substance: GABAPENTIN
  5. IBUPROFEN. [Concomitant]
     Active Substance: IBUPROFEN

REACTIONS (5)
  - Weight increased [None]
  - Ageusia [None]
  - Vision blurred [None]
  - Abdominal distension [None]
  - Feeling abnormal [None]

NARRATIVE: CASE EVENT DATE: 20150409
